FAERS Safety Report 5494321-1 (Version None)
Quarter: 2007Q4

REPORT INFORMATION
  Report Type: 
  Country: None (occurrence: None)
  Receive Date: 20071015
  Receipt Date: 20070803
  Transmission Date: 20080405
  Serious: No
  Sender: FDA-Public Use
  Company Number: 2007SP002744

PATIENT
  Age: 54 Year
  Sex: Female
  Weight: 59.8748 kg

DRUGS (4)
  1. LUNESTA [Suspect]
     Indication: INSOMNIA
     Dosage: 2 MG;PRN;ORAL, 2 MG;HS;ORAL
     Route: 048
     Dates: start: 20060101, end: 20070401
  2. LUNESTA [Suspect]
     Indication: INSOMNIA
     Dosage: 2 MG;PRN;ORAL, 2 MG;HS;ORAL
     Route: 048
     Dates: start: 20070401, end: 20070802
  3. ACTONEL [Concomitant]
  4. SYNTHROID [Concomitant]

REACTIONS (1)
  - ARTHRALGIA [None]
